FAERS Safety Report 17955102 (Version 1)
Quarter: 2020Q2

REPORT INFORMATION
  Report Type: Spontaneous
  Country: GB (occurrence: GB)
  Receive Date: 20200629
  Receipt Date: 20200629
  Transmission Date: 20200714
  Serious: Yes (Other)
  Sender: FDA-Public Use
  Company Number: NVSC2020GB176199

PATIENT
  Age: 33 Year
  Sex: Female
  Weight: 96 kg

DRUGS (23)
  1. CYCLIZINE [Concomitant]
     Active Substance: CYCLIZINE
     Indication: PRODUCT USED FOR UNKNOWN INDICATION
     Dosage: 50 MG, PRN (ONE TO BE TAKEN UP TO THREE TIMES A DAY)
     Route: 065
     Dates: start: 20200131, end: 20200306
  2. ACICLOVIR [Concomitant]
     Active Substance: ACYCLOVIR
     Indication: PRODUCT USED FOR UNKNOWN INDICATION
     Dosage: 800 MG, QD
     Route: 065
     Dates: start: 20200131
  3. DEXAMETHASONE. [Concomitant]
     Active Substance: DEXAMETHASONE
     Indication: PRODUCT USED FOR UNKNOWN INDICATION
     Dosage: 8 GTT, QD (ONE DROP BOTH EYES, FOUR TIMES A DAY)
     Route: 065
     Dates: start: 20200221, end: 20200404
  4. HYDROCORTISONE. [Concomitant]
     Active Substance: HYDROCORTISONE
     Indication: ADDISON^S DISEASE
     Dosage: 20 MG, QD (10MG IN THE MORNING, 5MG AT LUNCHTIME AND 5MG AT NIGHT)
     Route: 065
     Dates: start: 20200401
  5. REFRESH CELLUVISC [Concomitant]
     Active Substance: CARBOXYMETHYLCELLULOSE SODIUM
     Indication: PRODUCT USED FOR UNKNOWN INDICATION
     Dosage: 0.4 ML, QH (AS DIRECTED BY HOSPITAL)
     Route: 065
     Dates: start: 20200221, end: 20200404
  6. SYMBICORT [Concomitant]
     Active Substance: BUDESONIDE\FORMOTEROL FUMARATE DIHYDRATE
     Indication: ASTHMA
     Dosage: 4 DF, QD
     Route: 065
     Dates: start: 20200401
  7. CHLORAMPHENICOL [Concomitant]
     Active Substance: CHLORAMPHENICOL
     Indication: PRODUCT USED FOR UNKNOWN INDICATION
     Dosage: 2 ML, QD (IN AFFECTED EYE)
     Route: 065
     Dates: start: 20200221, end: 20200404
  8. IVABRADINE [Concomitant]
     Active Substance: IVABRADINE
     Indication: PRODUCT USED FOR UNKNOWN INDICATION
     Dosage: 10 MG, QD
     Route: 065
     Dates: start: 20200131
  9. FLUDROCORTISONE [Concomitant]
     Active Substance: FLUDROCORTISONE
     Indication: PRODUCT USED FOR UNKNOWN INDICATION
     Dosage: 100 UG, QD (TAKE 50MCG HALF A TABLET TWICE DAILY MDU BY ENDOCRINOLOGY)
     Route: 065
     Dates: start: 20200131
  10. CETRABEN EMOLLIENT [Concomitant]
     Indication: ECZEMA
     Dosage: UNK UNK, PRN
     Route: 065
     Dates: start: 20200401
  11. METFORMIN [Concomitant]
     Active Substance: METFORMIN HYDROCHLORIDE
     Indication: PRODUCT USED FOR UNKNOWN INDICATION
     Dosage: 1000 MG, QD (WITH EVENING MEAL)
     Route: 065
     Dates: start: 20200131
  12. DUPILUMAB [Concomitant]
     Active Substance: DUPILUMAB
     Indication: PRODUCT USED FOR UNKNOWN INDICATION
     Dosage: 200MG/1.14ML
     Route: 065
     Dates: start: 201901
  13. CANESTEN HYDROCORTISONE [Concomitant]
     Indication: PRODUCT USED FOR UNKNOWN INDICATION
     Dosage: 2 DF, QD (APPLY THINLY, FOR MAXIMUM 2 WEEKS)
     Route: 065
     Dates: start: 20200206, end: 20200306
  14. OMEPRAZOLE. [Concomitant]
     Active Substance: OMEPRAZOLE
     Indication: PRODUCT USED FOR UNKNOWN INDICATION
     Dosage: 20 MG, QD
     Route: 065
     Dates: start: 20200131
  15. MOMETASONE [Concomitant]
     Active Substance: MOMETASONE
     Indication: PRODUCT USED FOR UNKNOWN INDICATION
     Dosage: 1 DF, QD (APPLY THINLY AS DIRECTED)
     Route: 065
     Dates: start: 20200421
  16. HYDROCORTISONE SODIUM SUCCINATE [Concomitant]
     Active Substance: HYDROCORTISONE SODIUM SUCCINATE
     Indication: PRODUCT USED FOR UNKNOWN INDICATION
     Dosage: 100 MG (TO BE USED IF UNABLE TO TAKE ORAL HYDROCORTISONE)
     Route: 065
     Dates: start: 20200131
  17. OILATUM PLUS [Concomitant]
     Indication: ECZEMA
     Dosage: ADD ONE TO TWO CAPFULS TO BATH WATER
     Route: 065
     Dates: start: 20200401
  18. FEXOFENADINE [Concomitant]
     Active Substance: FEXOFENADINE HYDROCHLORIDE
     Indication: PRODUCT USED FOR UNKNOWN INDICATION
     Dosage: 120 MG, QD
     Route: 065
     Dates: start: 20200131
  19. DERMOL [Concomitant]
     Active Substance: BENZALKONIUM CHLORIDE\CHLORHEXIDINE HYDROCHLORIDE\ISOPROPYL MYRISTATE\PARAFFIN
     Indication: ECZEMA
     Dosage: UNK LOTION (APPLY TO SKIN OR USE AS A SOAP SUBSTITUTE)
     Route: 065
     Dates: start: 20200401
  20. MONOPOST [Concomitant]
     Active Substance: LATANOPROST
     Indication: PRODUCT USED FOR UNKNOWN INDICATION
     Dosage: 0.2 ML, QD (50 MICROGRAM/ML ONE DROP TO BE USED AT NIGHT IN THE AFFECTED EYE)
     Route: 065
     Dates: start: 20200221, end: 20200404
  21. QUETIAPINE. [Suspect]
     Active Substance: QUETIAPINE
     Indication: DEPRESSION
     Dosage: 25 MG, QD TABLET (AT NIGHT)
     Route: 065
     Dates: start: 20200401
  22. VENTOLIN [Concomitant]
     Active Substance: ALBUTEROL SULFATE
     Indication: PRODUCT USED FOR UNKNOWN INDICATION
     Dosage: UNK UNK, PRN (1 TO 2 PUFFS UP TO FOUR TIMES DAILY AS REQUIRED 100MICROGRAMS/DOSE)
     Route: 065
     Dates: start: 20200131
  23. SERTRALINE [Concomitant]
     Active Substance: SERTRALINE HYDROCHLORIDE
     Indication: PRODUCT USED FOR UNKNOWN INDICATION
     Dosage: 100 MG, QD
     Route: 065
     Dates: start: 20200131

REACTIONS (3)
  - Urticaria [Unknown]
  - Genital rash [Unknown]
  - Stevens-Johnson syndrome [Unknown]
